FAERS Safety Report 18887975 (Version 1)
Quarter: 2021Q1

REPORT INFORMATION
  Report Type: Spontaneous
  Country: RU (occurrence: RU)
  Receive Date: 20210212
  Receipt Date: 20210212
  Transmission Date: 20210420
  Serious: Yes (Other)
  Sender: FDA-Public Use
  Company Number: RU-ASTRAZENECA-2021A045788

PATIENT
  Age: 51 Year
  Sex: Female

DRUGS (6)
  1. HYDROXYCHLOROQUINE [Concomitant]
     Active Substance: HYDROXYCHLOROQUINE
     Indication: COVID-19
  2. DEXAMETHAZONE [Concomitant]
     Active Substance: DEXAMETHASONE
     Indication: COVID-19
     Dosage: 8 MG I\V UP TO 7 DAYS
  3. BUDESONIDE / FORMOTEROL [Suspect]
     Active Substance: BUDESONIDE\FORMOTEROL
     Indication: ASTHMA
     Dosage: 160\4,5 MCG 2 DOSAGE BID
     Route: 055
     Dates: start: 2018
  4. OMALIZUMAB. [Concomitant]
     Active Substance: OMALIZUMAB
     Dosage: 600 MG ONCE A DAY FOR 4 WEEKS
     Route: 065
     Dates: start: 201807
  5. ENOXAPARINE [Concomitant]
     Active Substance: ENOXAPARIN
     Indication: COVID-19
  6. AZITHROMYCIN ANHYDROUS. [Concomitant]
     Active Substance: AZITHROMYCIN ANHYDROUS
     Indication: COVID-19

REACTIONS (4)
  - Asthma [Unknown]
  - Respiratory tract infection viral [Unknown]
  - COVID-19 [Recovered/Resolved]
  - Drug ineffective [Unknown]

NARRATIVE: CASE EVENT DATE: 202004
